FAERS Safety Report 8271016-2 (Version None)
Quarter: 2012Q2

REPORT INFORMATION
  Report Type: 
  Country: None (occurrence: None)
  Receive Date: 20120410
  Receipt Date: 20120330
  Transmission Date: 20120825
  Serious: Yes (Death)
  Sender: FDA-Public Use
  Company Number: JP-ROCHE-1056533

PATIENT
  Sex: Female

DRUGS (16)
  1. FUTHAN [Concomitant]
     Route: 042
     Dates: start: 20061030, end: 20061106
  2. MYCOPHENOLATE MOFETIL (CELLCEPT) [Suspect]
     Route: 048
     Dates: start: 20061227
  3. PREDNISOLONE [Concomitant]
     Dosage: 5-10MG
     Route: 048
     Dates: start: 20070111
  4. PROGRAF [Concomitant]
     Route: 048
     Dates: start: 20061127
  5. REMINARON [Concomitant]
     Route: 042
     Dates: start: 20061030, end: 20061114
  6. MYCOPHENOLATE MOFETIL (CELLCEPT) [Suspect]
     Indication: PROPHYLAXIS AGAINST TRANSPLANT REJECTION
     Route: 048
     Dates: start: 20061104, end: 20061204
  7. SPANIDIN [Concomitant]
     Indication: RENAL AND PANCREAS TRANSPLANT REJECTION
     Route: 041
     Dates: start: 20061101, end: 20061101
  8. PROGRAF [Concomitant]
     Indication: PROPHYLAXIS AGAINST TRANSPLANT REJECTION
     Dosage: 29-41.7MG
     Route: 042
     Dates: start: 20061030, end: 20061127
  9. INOVAN [Concomitant]
     Route: 042
     Dates: start: 20061030, end: 20061126
  10. ELASPOL [Concomitant]
     Route: 042
     Dates: start: 20061030, end: 20061106
  11. INSULIN [Concomitant]
     Indication: TYPE 1 DIABETES MELLITUS
     Dosage: DOSAGE IS UNCERTAIN.
     Route: 058
     Dates: start: 19820101
  12. PREDNISOLONE [Concomitant]
     Indication: PROPHYLAXIS AGAINST TRANSPLANT REJECTION
     Dosage: 15-50MG
     Route: 042
     Dates: start: 20061030, end: 20070110
  13. MYCOPHENOLATE MOFETIL (CELLCEPT) [Suspect]
     Route: 048
     Dates: start: 20061205, end: 20061226
  14. MYCOPHENOLATE MOFETIL (CELLCEPT) [Suspect]
     Route: 048
  15. SIMULECT [Concomitant]
     Indication: PROPHYLAXIS AGAINST TRANSPLANT REJECTION
     Route: 042
     Dates: start: 20061102
  16. HUMULIN R [Concomitant]
     Indication: TYPE 1 DIABETES MELLITUS
     Dosage: 2-20IU
     Route: 058
     Dates: start: 20061030, end: 20061216

REACTIONS (1)
  - CARDIAC FAILURE [None]
